FAERS Safety Report 22646675 (Version 1)
Quarter: 2023Q2

REPORT INFORMATION
  Report Type: Report from Study
  Country: GB (occurrence: GB)
  Receive Date: 20230627
  Receipt Date: 20230627
  Transmission Date: 20230722
  Serious: Yes (Other)
  Sender: FDA-Public Use
  Company Number: GB-SAMSUNG BIOEPIS-SB-2023-08013

PATIENT
  Age: 71 Year
  Sex: Female

DRUGS (1)
  1. IMRALDI [Suspect]
     Active Substance: ADALIMUMAB
     Indication: Rheumatoid arthritis
     Dosage: STRENGTH 40 MG/0.8 ML;
     Route: 058
     Dates: start: 20230320

REACTIONS (5)
  - Mouth ulceration [Not Recovered/Not Resolved]
  - Gingival pain [Unknown]
  - Toothache [Unknown]
  - Taste disorder [Recovered/Resolved]
  - Hypoaesthesia [Unknown]

NARRATIVE: CASE EVENT DATE: 20230320
